FAERS Safety Report 4390775-2 (Version None)
Quarter: 2004Q3

REPORT INFORMATION
  Report Type: 
  Country: None (occurrence: None)
  Receive Date: 20040706
  Receipt Date: 20040706
  Transmission Date: 20050211
  Serious: No
  Sender: FDA-Public Use
  Company Number: None

PATIENT
  Sex: Male

DRUGS (2)
  1. DURAPREP [Suspect]
     Indication: PREOPERATIVE CARE
     Dosage: CUTANEOUS
     Route: 003
     Dates: start: 20040312, end: 20040312
  2. CHLORHEXIDINE GLUCONATE [Suspect]
     Indication: PREOPERATIVE CARE
     Dosage: CUTANEOUS
     Route: 003
     Dates: start: 20040312, end: 20040312

REACTIONS (4)
  - APPLICATION SITE REACTION [None]
  - CAUSTIC INJURY [None]
  - EXCORIATION [None]
  - SKIN DISORDER [None]
